FAERS Safety Report 19264141 (Version 1)
Quarter: 2021Q2

REPORT INFORMATION
  Report Type: Spontaneous
  Country: PL (occurrence: PL)
  Receive Date: 20210517
  Receipt Date: 20210517
  Transmission Date: 20210717
  Serious: Yes (Life-Threatening, Hospitalization)
  Sender: FDA-Public Use
  Company Number: PL-ACCORD-225000

PATIENT
  Age: 68 Year
  Sex: Female
  Weight: 80 kg

DRUGS (4)
  1. HYDROCHLOROTHIAZIDE. [Suspect]
     Active Substance: HYDROCHLOROTHIAZIDE
     Indication: ESSENTIAL HYPERTENSION
     Route: 048
  2. LERCANIDIPINE [Suspect]
     Active Substance: LERCANIDIPINE
     Indication: ESSENTIAL HYPERTENSION
     Route: 048
  3. TELMISARTAN. [Suspect]
     Active Substance: TELMISARTAN
     Indication: ESSENTIAL HYPERTENSION
     Route: 048
  4. EPLERENONE. [Suspect]
     Active Substance: EPLERENONE
     Indication: ESSENTIAL HYPERTENSION
     Route: 048

REACTIONS (3)
  - Hyponatraemia [Recovered/Resolved]
  - Altered state of consciousness [Recovered/Resolved]
  - Hypotension [Recovered/Resolved]
